FAERS Safety Report 20237305 (Version 7)
Quarter: 2022Q1

REPORT INFORMATION
  Report Type: Spontaneous
  Country: IT (occurrence: IT)
  Receive Date: 20211228
  Receipt Date: 20220302
  Transmission Date: 20220423
  Serious: Yes (Death, Hospitalization, Other)
  Sender: FDA-Public Use
  Company Number: IT-NOVARTISPH-NVSC2021IT296795

PATIENT
  Age: 77 Year
  Sex: Female
  Weight: 50 kg

DRUGS (32)
  1. POSACONAZOLE [Suspect]
     Active Substance: POSACONAZOLE
     Indication: Prophylaxis
     Dosage: 100 MILLIGRAM, TID
     Route: 048
     Dates: start: 20210922, end: 20211114
  2. ACETAMINOPHEN [Suspect]
     Active Substance: ACETAMINOPHEN
     Indication: Haemorrhoids
     Dosage: 500 MG, QD
     Route: 048
     Dates: start: 20211020, end: 20211020
  3. ACETAMINOPHEN [Suspect]
     Active Substance: ACETAMINOPHEN
     Indication: Contusion
     Dosage: 1 G, QD
     Route: 048
     Dates: start: 20211021, end: 20211114
  4. ACETAMINOPHEN [Suspect]
     Active Substance: ACETAMINOPHEN
     Dosage: 1 G, QD
     Route: 042
     Dates: start: 20211025, end: 20211025
  5. ACETAMINOPHEN [Suspect]
     Active Substance: ACETAMINOPHEN
     Dosage: UNK
     Route: 065
     Dates: start: 20211115, end: 20211115
  6. ACETAMINOPHEN [Suspect]
     Active Substance: ACETAMINOPHEN
     Dosage: 1 G, QD (AS REQUIRED)
     Route: 048
     Dates: start: 20211020, end: 20211020
  7. LEVOFLOXACIN [Suspect]
     Active Substance: LEVOFLOXACIN
     Indication: Product used for unknown indication
     Dosage: 500 MG, QD
     Route: 048
     Dates: start: 20210922, end: 20211114
  8. SIMVASTATIN [Interacting]
     Active Substance: SIMVASTATIN
     Indication: Dyslipidaemia
     Dosage: 20 MG, QD
     Route: 048
     Dates: start: 20150101, end: 20211116
  9. NOXAFIL [Interacting]
     Active Substance: POSACONAZOLE
     Indication: Antifungal prophylaxis
     Dosage: 300 MG, QD
     Route: 048
     Dates: start: 20210922, end: 20211114
  10. IMETELSTAT [Suspect]
     Active Substance: IMETELSTAT
     Indication: Product used for unknown indication
     Dosage: UNK
     Route: 065
  11. IMETELSTAT [Suspect]
     Active Substance: IMETELSTAT
     Dosage: 125 MG, QD
     Route: 048
     Dates: start: 20211021, end: 20211024
  12. IMETELSTAT [Suspect]
     Active Substance: IMETELSTAT
     Dosage: 125 MG, QD
     Route: 048
     Dates: start: 20211102, end: 20211114
  13. OMEPRAZOLE [Concomitant]
     Active Substance: OMEPRAZOLE
     Indication: Prophylaxis
     Dosage: 20 G, QD
     Route: 048
     Dates: start: 20190101
  14. OMEPRAZOLE [Concomitant]
     Active Substance: OMEPRAZOLE
     Dosage: UNK
     Route: 048
  15. MODURETIC 5-50 [Concomitant]
     Active Substance: AMILORIDE HYDROCHLORIDE\HYDROCHLOROTHIAZIDE
     Indication: Hypertension
     Dosage: 1 OT, QD (5+50 MG (5 MG,1 IN 1 D)
     Route: 048
     Dates: start: 20150101
  16. MODURETIC 5-50 [Concomitant]
     Active Substance: AMILORIDE HYDROCHLORIDE\HYDROCHLOROTHIAZIDE
     Dosage: 1 DOSAGE FORM, QD 5+50 MG (5 MG,1 IN 1 D)
     Route: 048
     Dates: start: 20150101
  17. MODURETIC 5-50 [Concomitant]
     Active Substance: AMILORIDE HYDROCHLORIDE\HYDROCHLOROTHIAZIDE
     Dosage: UNK UNK, TID (5+50 MG)
     Route: 048
     Dates: start: 2015
  18. VALDERMA [Concomitant]
     Indication: Haemorrhoids
     Dosage: UNK
     Route: 048
     Dates: start: 20211029
  19. VALDERMA [Concomitant]
     Dosage: UNK
     Route: 065
  20. ACYCLOVIR [Concomitant]
     Active Substance: ACYCLOVIR
     Indication: Prophylaxis
     Dosage: 800 MG,1 IN 1 D
     Route: 048
     Dates: start: 20190101, end: 20211114
  21. ACYCLOVIR [Concomitant]
     Active Substance: ACYCLOVIR
     Dosage: 800 MILLIGRAM, QD
     Route: 048
     Dates: start: 2019, end: 20211114
  22. TRAMADOL [Concomitant]
     Active Substance: TRAMADOL
     Indication: Haemorrhoids
     Dosage: 100 MG,1 IN 1
     Route: 042
     Dates: start: 20211026, end: 20211026
  23. PROCTOLYN [Concomitant]
     Indication: Haemorrhoids
     Dosage: 3, QD (0.1+10 MG (3 IN 1 D)
     Route: 061
     Dates: start: 20211021, end: 20211028
  24. PROCTOLYN [Concomitant]
     Dosage: 0.1+10 MG (3 IN 1 D)
     Route: 061
     Dates: start: 20211021, end: 20211028
  25. MESALAMINE [Concomitant]
     Active Substance: MESALAMINE
     Indication: Haemorrhoids
     Dosage: 1 DOSAGE FORM
     Route: 054
     Dates: start: 20211029
  26. POTASSIUM CHLORIDE [Concomitant]
     Active Substance: POTASSIUM CHLORIDE
     Indication: Product used for unknown indication
     Dosage: 20 MEQ, QD
     Route: 042
     Dates: start: 20211118, end: 20211119
  27. PIPERACILLIN SODIUM\TAZOBACTAM SODIUM [Concomitant]
     Active Substance: PIPERACILLIN SODIUM\TAZOBACTAM SODIUM
     Indication: Product used for unknown indication
     Dosage: 4 G/0.5G, TID
     Route: 042
     Dates: start: 20011117, end: 20211119
  28. PIPERACILLIN SODIUM\TAZOBACTAM SODIUM [Concomitant]
     Active Substance: PIPERACILLIN SODIUM\TAZOBACTAM SODIUM
     Dosage: 4 G/0.5G, ONCE/SINGLE
     Route: 042
     Dates: start: 20211120, end: 20211120
  29. LASSAR PASTA MERCK [Concomitant]
     Indication: Haemorrhoids
     Dosage: UNK
     Route: 061
     Dates: start: 20211029
  30. OXYGEN [Concomitant]
     Active Substance: OXYGEN
     Indication: Product used for unknown indication
     Dosage: 1 TO 2 LITRES PER MINUTE AS NEEDED
     Route: 065
     Dates: start: 20211117, end: 20211117
  31. OXYGEN [Concomitant]
     Active Substance: OXYGEN
     Dosage: 4 LITRES PER MINUTE AS NEEDEDUNK
     Route: 065
     Dates: start: 20211120
  32. OXYGEN [Concomitant]
     Active Substance: OXYGEN
     Dosage: 3 LITRES PER MINUTE AS NEEDED
     Route: 065
     Dates: start: 20211118, end: 20211119

REACTIONS (23)
  - Acute myeloid leukaemia [Fatal]
  - Renal disorder [Unknown]
  - Infection [Unknown]
  - Nausea [Not Recovered/Not Resolved]
  - Pain [Unknown]
  - Vomiting [Unknown]
  - Neutropenia [Unknown]
  - Constipation [Recovered/Resolved]
  - Diarrhoea [Recovered/Resolved]
  - Hypokalaemia [Recovered/Resolved]
  - Asthenia [Unknown]
  - Anaemia [Not Recovered/Not Resolved]
  - Hyponatraemia [Not Recovered/Not Resolved]
  - Drug-induced liver injury [Not Recovered/Not Resolved]
  - Tachycardia [Unknown]
  - Pneumonia [Not Recovered/Not Resolved]
  - Thrombocytopenia [Unknown]
  - Blood bilirubin increased [Unknown]
  - Blood alkaline phosphatase increased [Unknown]
  - Aspartate aminotransferase increased [Unknown]
  - Blood lactate dehydrogenase increased [Unknown]
  - Labelled drug-drug interaction medication error [Unknown]
  - Haemorrhoids [Not Recovered/Not Resolved]

NARRATIVE: CASE EVENT DATE: 20210811
